FAERS Safety Report 12390250 (Version 1)
Quarter: 2016Q2

REPORT INFORMATION
  Report Type: Spontaneous
  Country: GB (occurrence: GB)
  Receive Date: 20160520
  Receipt Date: 20160520
  Transmission Date: 20160815
  Serious: Yes (Disabling, Other)
  Sender: FDA-Public Use
  Company Number: GB-AMGEN-GBRSP2016062317

PATIENT
  Age: 66 Year
  Sex: Female

DRUGS (4)
  1. ADCAL                              /00056901/ [Concomitant]
     Active Substance: CARBAZOCHROME
  2. PRIMROSE OIL [Concomitant]
  3. LEVOTHYROXINE. [Concomitant]
     Active Substance: LEVOTHYROXINE
     Indication: HYPOTHYROIDISM
  4. PROLIA [Suspect]
     Active Substance: DENOSUMAB
     Indication: OSTEOPOROSIS
     Dosage: 1 DF, Q6MO
     Route: 051

REACTIONS (9)
  - Depression [Unknown]
  - Gastric disorder [Not Recovered/Not Resolved]
  - Oral pain [Not Recovered/Not Resolved]
  - Alopecia [Not Recovered/Not Resolved]
  - Headache [Not Recovered/Not Resolved]
  - Gastrooesophageal reflux disease [Not Recovered/Not Resolved]
  - Glossodynia [Not Recovered/Not Resolved]
  - Anxiety [Unknown]
  - Pain in jaw [Not Recovered/Not Resolved]
